FAERS Safety Report 14955084 (Version 2)
Quarter: 2018Q2

REPORT INFORMATION
  Report Type: Spontaneous
  Country: US (occurrence: US)
  Receive Date: 20180531
  Receipt Date: 20180611
  Transmission Date: 20180711
  Serious: Yes (Other)
  Sender: FDA-Public Use
  Company Number: US-BEH-2018091129

PATIENT
  Age: 48 Year
  Sex: Male

DRUGS (1)
  1. HAEMATE P [Suspect]
     Active Substance: ANTIHEMOPHILIC FACTOR HUMAN
     Indication: VON WILLEBRAND^S DISEASE
     Dosage: 1850 UNK, PRN
     Route: 042
     Dates: start: 201805

REACTIONS (1)
  - Renal surgery [Unknown]

NARRATIVE: CASE EVENT DATE: 20180525
